FAERS Safety Report 8373062-7 (Version None)
Quarter: 2012Q2

REPORT INFORMATION
  Report Type: 
  Country: None (occurrence: None)
  Receive Date: 20120521
  Receipt Date: 20120516
  Transmission Date: 20120825
  Serious: Yes (Hospitalization)
  Sender: FDA-Public Use
  Company Number: PHHY2011CA25995

PATIENT
  Sex: Female

DRUGS (3)
  1. ZOLEDRONOC ACID [Suspect]
     Indication: OSTEOPOROSIS
     Dosage: UNK
     Route: 042
     Dates: start: 20100505
  2. ZOLEDRONOC ACID [Suspect]
     Dosage: UNK
     Route: 042
     Dates: start: 20110509
  3. ZOLEDRONOC ACID [Suspect]
     Dosage: UNK
     Route: 042
     Dates: start: 20120515

REACTIONS (9)
  - MALAISE [None]
  - PYREXIA [None]
  - INSOMNIA [None]
  - HEADACHE [None]
  - NASOPHARYNGITIS [None]
  - POOR VENOUS ACCESS [None]
  - PAIN IN EXTREMITY [None]
  - VOMITING [None]
  - NAUSEA [None]
